FAERS Safety Report 9228379 (Version 4)
Quarter: 2013Q2

REPORT INFORMATION
  Report Type: Spontaneous
  Country: US (occurrence: US)
  Receive Date: 20130412
  Receipt Date: 20130529
  Transmission Date: 20140414
  Serious: No
  Sender: FDA-Public Use
  Company Number: US-009507513-1304USA002297

PATIENT
  Age: 33 Year
  Sex: Female
  Weight: 75.74 kg

DRUGS (2)
  1. GANIRELIX ACETATE INJECTION [Suspect]
     Indication: PREVENTION OF PREMATURE OVULATION
     Dosage: 1 STANDARD DOE OF 0.5 (25 MCG/0.5ML)
     Route: 058
     Dates: start: 20130401, end: 20130405
  2. GANIRELIX ACETATE INJECTION [Suspect]
     Dosage: 1 STANDARD DOE OF 0.5 (25 MCG/0.5ML)
     Route: 058
     Dates: start: 20130403

REACTIONS (2)
  - Pigmentation disorder [Not Recovered/Not Resolved]
  - Product quality issue [Unknown]
